FAERS Safety Report 7512060-X (Version None)
Quarter: 2011Q2

REPORT INFORMATION
  Report Type: 
  Country: None (occurrence: None)
  Receive Date: 20110531
  Receipt Date: 20110516
  Transmission Date: 20111010
  Serious: Yes (Other)
  Sender: FDA-Public Use
  Company Number: US-BAYER-2011-005042

PATIENT
  Age: 18 Year
  Sex: Female
  Weight: 53.696 kg

DRUGS (5)
  1. YAZ [Suspect]
     Indication: PRODUCT USED FOR UNKNOWN INDICATION
     Dosage: UNK
     Route: 048
     Dates: start: 20080901, end: 20090901
  2. SINGULAIR [Concomitant]
     Indication: MULTIPLE ALLERGIES
     Dosage: UNK
     Route: 048
     Dates: start: 20070101
  3. AVELOX [Concomitant]
     Indication: PNEUMONIA
     Dosage: 400 MG, QD
  4. ZYRTEC [Concomitant]
     Indication: MULTIPLE ALLERGIES
     Dosage: UNK
     Route: 048
     Dates: start: 20070101
  5. CLINDAMYCIN [Concomitant]
     Indication: ANIMAL BITE
     Dosage: UNK
     Route: 048
     Dates: start: 20090815

REACTIONS (5)
  - CHOLELITHIASIS [None]
  - PAIN [None]
  - HEADACHE [None]
  - CHOLECYSTITIS ACUTE [None]
  - CHOLECYSTITIS CHRONIC [None]
